FAERS Safety Report 12350706 (Version 1)
Quarter: 2016Q2

REPORT INFORMATION
  Report Type: Spontaneous
  Country: US (occurrence: None)
  Receive Date: 20160509
  Receipt Date: 20160509
  Transmission Date: 20160815
  Serious: Yes (Hospitalization, Disabling, Other)
  Sender: FDA-Public Use
  Company Number: None

PATIENT
  Age: 73 Year
  Sex: Male
  Weight: 113.4 kg

DRUGS (23)
  1. MORPHINE SULFATE 60MG ER, 60 MG [Suspect]
     Active Substance: MORPHINE SULFATE
     Indication: SPINAL OSTEOARTHRITIS
     Route: 048
     Dates: start: 20160229, end: 20160303
  2. OXYCOTIN [Concomitant]
  3. MULTI VIT. [Concomitant]
  4. MORPHINE SULFATE 60MG ER, 60 MG [Suspect]
     Active Substance: MORPHINE SULFATE
     Indication: INTERVERTEBRAL DISC DEGENERATION
     Route: 048
     Dates: start: 20160229, end: 20160303
  5. MORPHINE SULFATE 60MG ER, 60 MG [Suspect]
     Active Substance: MORPHINE SULFATE
     Indication: SCOLIOSIS
     Route: 048
     Dates: start: 20160229, end: 20160303
  6. PLAVIX [Concomitant]
     Active Substance: CLOPIDOGREL BISULFATE
  7. B-100 [Concomitant]
  8. VITAMIN D3 [Concomitant]
     Active Substance: CHOLECALCIFEROL
  9. LYRICA [Concomitant]
     Active Substance: PREGABALIN
  10. TRAZODONE [Concomitant]
     Active Substance: TRAZODONE HYDROCHLORIDE
  11. OPANA [Concomitant]
     Active Substance: OXYMORPHONE HYDROCHLORIDE
  12. VITAMIN C [Concomitant]
     Active Substance: ASCORBIC ACID
  13. MORPHINE SULFATE 60MG ER, 60 MG [Suspect]
     Active Substance: MORPHINE SULFATE
     Indication: SPINAL COLUMN STENOSIS
     Route: 048
     Dates: start: 20160229, end: 20160303
  14. BETA CAROTINE [Concomitant]
  15. E [Concomitant]
  16. FISH OIL [Concomitant]
     Active Substance: FISH OIL
  17. GLUCOSAMINE SULFATE [Concomitant]
     Active Substance: GLUCOSAMINE SULFATE
  18. EFFEXOR [Concomitant]
     Active Substance: VENLAFAXINE HYDROCHLORIDE
  19. I CAP VIT. [Concomitant]
  20. MORPHINE SULFATE 60MG ER, 60 MG [Suspect]
     Active Substance: MORPHINE SULFATE
     Indication: SPONDYLOLISTHESIS
     Route: 048
     Dates: start: 20160229, end: 20160303
  21. COQ10 [Concomitant]
     Active Substance: UBIDECARENONE
  22. HYDROXYZINE [Concomitant]
     Active Substance: HYDROXYZINE\HYDROXYZINE HYDROCHLORIDE
  23. CALCIUM [Concomitant]
     Active Substance: CALCIUM

REACTIONS (2)
  - Thrombotic stroke [None]
  - Rash [None]

NARRATIVE: CASE EVENT DATE: 20160302
